FAERS Safety Report 5350839-3 (Version None)
Quarter: 2007Q2

REPORT INFORMATION
  Report Type: 
  Country: None (occurrence: None)
  Receive Date: 20070608
  Receipt Date: 20070605
  Transmission Date: 20071010
  Serious: Yes (Hospitalization)
  Sender: FDA-Public Use
  Company Number: A0654233A

PATIENT
  Age: 53 Year
  Sex: Male

DRUGS (8)
  1. AVANDIA [Suspect]
     Dosage: 8MG PER DAY
     Route: 048
     Dates: start: 20060802, end: 20070529
  2. LIPITOR [Concomitant]
  3. GLUCOPHAGE [Concomitant]
  4. BISOPROLOL FUMARATE [Concomitant]
  5. LISINOPRIL AND HYDROCHLOROTHIAZIDE [Concomitant]
  6. NEXIUM [Concomitant]
  7. GLIPIZIDE [Concomitant]
  8. ALBUTEROL [Concomitant]

REACTIONS (1)
  - MYOCARDIAL INFARCTION [None]
